FAERS Safety Report 16796766 (Version 4)
Quarter: 2022Q1

REPORT INFORMATION
  Report Type: Report from Study
  Country: CO (occurrence: CO)
  Receive Date: 20190911
  Receipt Date: 20220301
  Transmission Date: 20220423
  Serious: Yes (Hospitalization, Other)
  Sender: FDA-Public Use
  Company Number: PHHY2019CO207885

PATIENT
  Sex: Female
  Weight: 100 kg

DRUGS (7)
  1. XOLAIR [Suspect]
     Active Substance: OMALIZUMAB
     Indication: Idiopathic urticaria
     Dosage: 300 MG, QMO (SOLUTION)
     Route: 058
     Dates: start: 20181130
  2. XOLAIR [Suspect]
     Active Substance: OMALIZUMAB
     Dosage: 300 MG, QMO
     Route: 058
     Dates: start: 20190829
  3. METOPROLOL [Suspect]
     Active Substance: METOPROLOL
     Indication: Hypertension
     Dosage: 1 DF, QD
     Route: 048
  4. LOSARTAN [Suspect]
     Active Substance: LOSARTAN
     Indication: Hypertension
     Dosage: 1 DF, QD
     Route: 048
  5. FEXOFENADINE [Concomitant]
     Active Substance: FEXOFENADINE HYDROCHLORIDE
     Indication: Hypersensitivity
     Dosage: 1 DF, QD
     Route: 065
  6. FEXOFENADINE [Concomitant]
     Active Substance: FEXOFENADINE HYDROCHLORIDE
     Indication: Urticaria
  7. ASPIRIN [Concomitant]
     Active Substance: ASPIRIN
     Indication: Product used for unknown indication
     Dosage: UNK
     Route: 065

REACTIONS (13)
  - Swollen tongue [Unknown]
  - Glossitis [Recovering/Resolving]
  - Inflammation [Recovering/Resolving]
  - Skin plaque [Recovering/Resolving]
  - Erythema [Recovering/Resolving]
  - Gastritis [Recovering/Resolving]
  - Eye inflammation [Recovering/Resolving]
  - Eye swelling [Recovering/Resolving]
  - Lip swelling [Not Recovered/Not Resolved]
  - Cheilitis [Recovering/Resolving]
  - Abdominal distension [Recovering/Resolving]
  - Urticaria [Recovering/Resolving]
  - Product availability issue [Unknown]

NARRATIVE: CASE EVENT DATE: 20190101
